FAERS Safety Report 17339742 (Version 1)
Quarter: 2020Q1

REPORT INFORMATION
  Report Type: Spontaneous
  Country: NL (occurrence: NL)
  Receive Date: 20200129
  Receipt Date: 20200129
  Transmission Date: 20200409
  Serious: Yes (Other)
  Sender: FDA-Public Use
  Company Number: NL-PFIZER INC-2020036071

PATIENT
  Age: 44 Month
  Sex: Female
  Weight: 15 kg

DRUGS (1)
  1. ZITHROMAX [Suspect]
     Active Substance: AZITHROMYCIN DIHYDRATE
     Indication: PNEUMONIA MYCOPLASMAL
     Dosage: 1 DF, DAILY (1 X 3 DAYS CHILD)
     Route: 048
     Dates: start: 20191125, end: 20191127

REACTIONS (1)
  - Hypothermia [Recovering/Resolving]

NARRATIVE: CASE EVENT DATE: 20191127
